FAERS Safety Report 8270128-7 (Version None)
Quarter: 2012Q2

REPORT INFORMATION
  Report Type: 
  Country: None (occurrence: None)
  Receive Date: 20120410
  Receipt Date: 20120405
  Transmission Date: 20120825
  Serious: Yes (Other)
  Sender: FDA-Public Use
  Company Number: PHHY2012AU029476

PATIENT
  Sex: Female

DRUGS (1)
  1. ZOLEDRONOC ACID [Suspect]
     Route: 042
     Dates: start: 20110324

REACTIONS (2)
  - CEREBROVASCULAR ACCIDENT [None]
  - ADVERSE DRUG REACTION [None]
